FAERS Safety Report 13689286 (Version 1)
Quarter: 2017Q2

REPORT INFORMATION
  Report Type: Spontaneous
  Country: US (occurrence: US)
  Receive Date: 20170625
  Receipt Date: 20170625
  Transmission Date: 20170830
  Serious: Yes (Disabling)
  Sender: FDA-Public Use
  Company Number: None

PATIENT
  Age: 64 Year
  Sex: Male
  Weight: 81 kg

DRUGS (6)
  1. CLONAZAPAM [Suspect]
     Active Substance: CLONAZEPAM
     Indication: ANXIETY
  2. CLONAZAPAM [Suspect]
     Active Substance: CLONAZEPAM
     Indication: INSOMNIA
  3. MULTIVITAMIN [Concomitant]
     Active Substance: VITAMINS
  4. MELATONIN [Concomitant]
     Active Substance: MELATONIN
  5. METFORMIN [Concomitant]
     Active Substance: METFORMIN HYDROCHLORIDE
  6. PRISTIQ EXTENDED-RELEASE [Concomitant]
     Active Substance: DESVENLAFAXINE SUCCINATE

REACTIONS (10)
  - Fatigue [None]
  - Fear [None]
  - Feeling abnormal [None]
  - Emotional disorder [None]
  - Impaired quality of life [None]
  - Confusional state [None]
  - Poor quality sleep [None]
  - Withdrawal syndrome [None]
  - Disturbance in attention [None]
  - Derealisation [None]

NARRATIVE: CASE EVENT DATE: 20170211
